FAERS Safety Report 5707163-6 (Version None)
Quarter: 2008Q2

REPORT INFORMATION
  Report Type: 
  Country: None (occurrence: None)
  Receive Date: 20080416
  Receipt Date: 20080409
  Transmission Date: 20081010
  Serious: Yes (Hospitalization)
  Sender: FDA-Public Use
  Company Number: JP-BAYER-200810666BYL

PATIENT
  Age: 70 Year
  Sex: Female

DRUGS (1)
  1. ASPIRIN [Suspect]
     Indication: ANGINA PECTORIS
     Route: 048

REACTIONS (3)
  - ABDOMINAL PAIN UPPER [None]
  - MELAENA [None]
  - SMALL INTESTINAL ULCER HAEMORRHAGE [None]
